FAERS Safety Report 6678825-1 (Version None)
Quarter: 2010Q2

REPORT INFORMATION
  Report Type: 
  Country: None (occurrence: None)
  Receive Date: 20100412
  Receipt Date: 20100412
  Transmission Date: 20101027
  Serious: Yes (Death)
  Sender: FDA-Public Use
  Company Number: None

PATIENT
  Age: 2 Year
  Sex: Female
  Weight: 9.06 kg

DRUGS (4)
  1. VIRAMUNE [Suspect]
     Indication: HIV INFECTION
     Dosage: 9 ML BID ORAL
     Route: 048
     Dates: start: 20091229, end: 20100320
  2. EPIVIR [Suspect]
     Indication: HIV INFECTION
     Dosage: 3 ML BID ORAL
     Route: 048
     Dates: start: 20091229, end: 20100320
  3. COTRIM [Concomitant]
  4. TONOFERON (COLLOIDAL IRON, FOLIC ACID, AND VITAMIN B12) [Concomitant]

REACTIONS (6)
  - BLOOD TRIGLYCERIDES INCREASED [None]
  - HAEMOGLOBIN DECREASED [None]
  - INJURY [None]
  - LYMPHOCYTE COUNT INCREASED [None]
  - NASOPHARYNGITIS [None]
  - PNEUMONIA [None]
